FAERS Safety Report 13552377 (Version 1)
Quarter: 2017Q2

REPORT INFORMATION
  Report Type: Spontaneous
  Country: US (occurrence: US)
  Receive Date: 20170517
  Receipt Date: 20170517
  Transmission Date: 20170830
  Serious: No
  Sender: FDA-Public Use
  Company Number: US-ASTRAZENECA-2017SE50663

PATIENT
  Sex: Male
  Weight: 83.5 kg

DRUGS (6)
  1. SYMBICORT [Suspect]
     Active Substance: BUDESONIDE\FORMOTEROL FUMARATE DIHYDRATE
     Indication: CHRONIC OBSTRUCTIVE PULMONARY DISEASE
     Dosage: TAKING IT TWO PUFFS TWICE A DAY, EVERY OTHER DAY, AND TAKING IT TWO PUFFS IN THE MORNING ON THE D...
     Route: 055
  2. RANITIDINE. [Concomitant]
     Active Substance: RANITIDINE
     Indication: GASTRIC DISORDER
     Route: 048
     Dates: start: 201702
  3. SYMBICORT [Suspect]
     Active Substance: BUDESONIDE\FORMOTEROL FUMARATE DIHYDRATE
     Indication: CHRONIC OBSTRUCTIVE PULMONARY DISEASE
     Route: 055
  4. FISH OIL [Concomitant]
     Active Substance: FISH OIL
     Indication: SUPPLEMENTATION THERAPY
     Dosage: 1000 MG PLUS 300 MG OMEGA, 3 A DAY
     Route: 048
  5. ESTER C [Concomitant]
     Indication: IMMUNE SYSTEM DISORDER
     Route: 048
  6. SYMBICORT [Suspect]
     Active Substance: BUDESONIDE\FORMOTEROL FUMARATE DIHYDRATE
     Indication: CHRONIC OBSTRUCTIVE PULMONARY DISEASE
     Dosage: 160/4.5, TWO PUFFS TWICE A DAY
     Route: 055

REACTIONS (6)
  - Drug dose omission [Unknown]
  - Product use issue [Unknown]
  - Intentional product misuse [Unknown]
  - Eye disorder [Unknown]
  - Suffocation feeling [Unknown]
  - Headache [Unknown]
